FAERS Safety Report 15825505 (Version 1)
Quarter: 2018Q4

REPORT INFORMATION
  Report Type: Spontaneous
  Country: US (occurrence: US)
  Receive Date: 20181217
  Receipt Date: 20181217
  Transmission Date: 20190205
  Serious: Yes (Death)
  Sender: FDA-Public Use
  Company Number: None

PATIENT
  Age: 64 Year
  Sex: Female
  Weight: 36.3 kg

DRUGS (1)
  1. CLOFAZIMINE 50MG CAPSULES [Suspect]
     Active Substance: CLOFAZIMINE
     Indication: MYCOBACTERIAL INFECTION
     Route: 048
     Dates: start: 20181026, end: 20181104

REACTIONS (9)
  - Hypoglycaemia [None]
  - Blood electrolytes abnormal [None]
  - Pulmonary embolism [None]
  - Sepsis [None]
  - Cardio-respiratory arrest [None]
  - Cardiac arrest [None]
  - Myocardial infarction [None]
  - Pericardial effusion [None]
  - Acidosis [None]

NARRATIVE: CASE EVENT DATE: 20181104
